FAERS Safety Report 9897449 (Version 1)
Quarter: 2014Q1

REPORT INFORMATION
  Report Type: Spontaneous
  Country: US (occurrence: US)
  Receive Date: 20140214
  Receipt Date: 20140214
  Transmission Date: 20141002
  Serious: Yes (Other)
  Sender: FDA-Public Use
  Company Number: US-SA-2014SA017740

PATIENT
  Age: 81 Year
  Sex: Female
  Weight: 70 kg

DRUGS (11)
  1. PLAVIX [Suspect]
     Route: 065
  2. SPRYCEL [Suspect]
     Dosage: EVERY OTHER DAY 2 WEEKS.
     Route: 065
  3. SPRYCEL [Suspect]
     Dosage: EVERY OTHER DAY.
     Route: 065
  4. AMLODIPINE BESILATE [Concomitant]
  5. METOPROLOL [Concomitant]
  6. LISINOPRIL [Concomitant]
  7. SYNTHROID [Concomitant]
  8. FLUOXETINE [Concomitant]
  9. ASPIRIN [Concomitant]
  10. LIPITOR [Concomitant]
  11. HIPREX [Concomitant]

REACTIONS (5)
  - Chronic myeloid leukaemia [Unknown]
  - Malaise [Unknown]
  - Diarrhoea [Unknown]
  - Abdominal pain upper [Unknown]
  - Vomiting [Recovered/Resolved]
